FAERS Safety Report 5373942-0 (Version None)
Quarter: 2007Q2

REPORT INFORMATION
  Report Type: 
  Country: None (occurrence: None)
  Receive Date: 20070628
  Receipt Date: 20070621
  Transmission Date: 20071010
  Serious: Yes (Other)
  Sender: FDA-Public Use
  Company Number: US-PFIZER INC-2007051766

PATIENT
  Sex: Male
  Weight: 83.9 kg

DRUGS (3)
  1. CAVERJECT POWDER, STERILE [Suspect]
     Indication: ERECTILE DYSFUNCTION
  2. SINEMET [Concomitant]
  3. REQUIP [Concomitant]

REACTIONS (2)
  - DRUG INEFFECTIVE [None]
  - FOOT OPERATION [None]
